FAERS Safety Report 5623325-0 (Version None)
Quarter: 2008Q1

REPORT INFORMATION
  Report Type: 
  Country: None (occurrence: None)
  Receive Date: 20080212
  Receipt Date: 20080206
  Transmission Date: 20080703
  Serious: Yes (Hospitalization, Other)
  Sender: FDA-Public Use
  Company Number: US-BAYER-200715318NA

PATIENT
  Age: 76 Year
  Sex: Female

DRUGS (11)
  1. NEXAVAR [Suspect]
     Indication: HEPATIC NEOPLASM MALIGNANT
     Dosage: TOTAL DAILY DOSE: 800 MG  UNIT DOSE: 200 MG
     Route: 048
     Dates: start: 20071114, end: 20071114
  2. NEXAVAR [Suspect]
     Dosage: TOTAL DAILY DOSE: 800 MG  UNIT DOSE: 200 MG
     Route: 048
     Dates: start: 20071108, end: 20071113
  3. NEXAVAR [Suspect]
     Dosage: TOTAL DAILY DOSE: 800 MG  UNIT DOSE: 200 MG
     Route: 048
     Dates: start: 20070628, end: 20071011
  4. LISINOPRIL [Concomitant]
  5. HUMULIN 70/30 [Concomitant]
  6. JANUVIA [Concomitant]
  7. ISRADIPINE [Concomitant]
  8. LEVOTHYROXINE SODIUM [Concomitant]
  9. IRON SUPPLEMENT [Concomitant]
  10. POTASSIUM SUPPLEMENT [Concomitant]
  11. ASPIRIN [Concomitant]

REACTIONS (7)
  - ASTHENIA [None]
  - CHEST PAIN [None]
  - EJECTION FRACTION DECREASED [None]
  - HEART RATE INCREASED [None]
  - HYPERHIDROSIS [None]
  - MYOCARDIAL INFARCTION [None]
  - PAIN IN EXTREMITY [None]
